FAERS Safety Report 15648710 (Version 1)
Quarter: 2018Q4

REPORT INFORMATION
  Report Type: Spontaneous
  Country: US (occurrence: JP)
  Receive Date: 20181122
  Receipt Date: 20181122
  Transmission Date: 20190205
  Serious: Yes (Hospitalization)
  Sender: FDA-Public Use
  Company Number: JP-TEVA-2018-JP-977545

PATIENT
  Age: 46 Year
  Sex: Female

DRUGS (2)
  1. GEMCITABINE [Suspect]
     Active Substance: GEMCITABINE\GEMCITABINE HYDROCHLORIDE
     Indication: PANCREATIC CARCINOMA METASTATIC
     Dosage: RECEIVED A TOTAL DOSE OF 11000MG IN 8 MONTHS
     Route: 065
  2. GEMCITABINE [Suspect]
     Active Substance: GEMCITABINE\GEMCITABINE HYDROCHLORIDE
     Indication: PANCREATIC CARCINOMA METASTATIC
     Dosage: DOSE WAS LATER INCREASED
     Route: 065

REACTIONS (9)
  - Acute kidney injury [Recovered/Resolved]
  - Hypoventilation [Unknown]
  - Haemolytic anaemia [Unknown]
  - Thrombocytopenia [Recovered/Resolved]
  - Pleural effusion [Unknown]
  - Nephrotic syndrome [Recovered/Resolved]
  - Thrombotic microangiopathy [Recovered/Resolved]
  - Tubulointerstitial nephritis [Unknown]
  - Hypertension [Unknown]
